FAERS Safety Report 9661039 (Version 1)
Quarter: 2013Q4

REPORT INFORMATION
  Report Type: Spontaneous
  Country: GB (occurrence: None)
  Receive Date: 20131030
  Receipt Date: 20131030
  Transmission Date: 20140711
  Serious: Yes (Life-Threatening, Hospitalization, Disabling)
  Sender: FDA-Public Use
  Company Number: GB-AIKEM-000202

PATIENT
  Age: 27 Year
  Sex: Male

DRUGS (2)
  1. QUETIAPINE [Suspect]
     Indication: DEPRESSION
     Dosage: 50MG 2 TIMES PER 1 DAY ORAL
     Route: 048
     Dates: start: 20110516
  2. VENLAFAXINE (VENLAFAXINE) [Suspect]
     Indication: DEPRESSION
     Route: 048
     Dates: start: 20130110

REACTIONS (2)
  - Congestive cardiomyopathy [None]
  - Liver function test abnormal [None]
